FAERS Safety Report 9700810 (Version 1)
Quarter: 2013Q4

REPORT INFORMATION
  Report Type: Spontaneous
  Country: US (occurrence: None)
  Receive Date: 20131119
  Receipt Date: 20131119
  Transmission Date: 20140711
  Serious: Yes (Other)
  Sender: FDA-Public Use
  Company Number: 7248786

PATIENT
  Age: 66 Year
  Sex: Female

DRUGS (1)
  1. EUTHYROX [Suspect]
     Indication: AUTOIMMUNE THYROIDITIS
     Route: 048
     Dates: start: 2012

REACTIONS (6)
  - Respiratory distress [None]
  - Hypoaesthesia oral [None]
  - Palatal oedema [None]
  - Uvulitis [None]
  - Malaise [None]
  - Hypoaesthesia oral [None]
